FAERS Safety Report 4954581-X (Version None)
Quarter: 2006Q1

REPORT INFORMATION
  Report Type: 
  Country: None (occurrence: None)
  Receive Date: 20060327
  Receipt Date: 20060317
  Transmission Date: 20060701
  Serious: Yes (Other)
  Sender: FDA-Public Use
  Company Number: US-JNJFOC-20060304554

PATIENT
  Sex: Female

DRUGS (1)
  1. MS TYLENOL COLD AND FLU SEVERE DAYTIME WITH COOL BURST [Suspect]
     Dosage: 30 ML TAKEN A TOTAL OF 3 TIMES
     Route: 048

REACTIONS (2)
  - SWELLING FACE [None]
  - URTICARIA [None]
